FAERS Safety Report 8182500-4 (Version None)
Quarter: 2012Q1

REPORT INFORMATION
  Report Type: 
  Country: None (occurrence: None)
  Receive Date: 20120305
  Receipt Date: 20120224
  Transmission Date: 20120608
  Serious: Yes (Hospitalization)
  Sender: FDA-Public Use
  Company Number: US-BIOGENIDEC-2012BI007037

PATIENT
  Age: 60 Year
  Sex: Female

DRUGS (4)
  1. AVONEX [Suspect]
     Route: 030
     Dates: start: 20041115, end: 20050216
  2. AVONEX [Suspect]
     Indication: MULTIPLE SCLEROSIS
     Route: 030
     Dates: start: 20000215, end: 20041011
  3. AVONEX [Suspect]
     Route: 030
     Dates: start: 20091030
  4. AVONEX [Suspect]
     Route: 030
     Dates: start: 20090801

REACTIONS (1)
  - SYNOVIAL CYST [None]
